FAERS Safety Report 8587635-X (Version None)
Quarter: 2012Q3

REPORT INFORMATION
  Report Type: 
  Country: None (occurrence: None)
  Receive Date: 20120811
  Receipt Date: 20120731
  Transmission Date: 20120928
  Serious: No
  Sender: FDA-Public Use
  Company Number: US-ASTRAZENECA-2012SE54088

PATIENT
  Age: 61 Year
  Sex: Male
  Weight: 77.1 kg

DRUGS (6)
  1. PILL [Concomitant]
     Indication: DIABETES MELLITUS
  2. BRILINTA [Suspect]
     Indication: STENT PLACEMENT
     Route: 048
     Dates: start: 20120701
  3. ASPIRIN [Concomitant]
  4. BRILINTA [Suspect]
     Indication: CORONARY ARTERY INSUFFICIENCY
     Route: 048
     Dates: start: 20120701
  5. INSULIN [Concomitant]
     Indication: DIABETES MELLITUS
  6. BRILINTA [Suspect]
     Indication: CARDIOVASCULAR EVENT PROPHYLAXIS
     Route: 048
     Dates: start: 20120701

REACTIONS (3)
  - CHROMATURIA [None]
  - DYSPNOEA [None]
  - INTENTIONAL DRUG MISUSE [None]
